FAERS Safety Report 14479513 (Version 1)
Quarter: 2018Q1

REPORT INFORMATION
  Report Type: Spontaneous
  Country: US (occurrence: US)
  Receive Date: 20180201
  Receipt Date: 20180201
  Transmission Date: 20180509
  Serious: Yes (Hospitalization)
  Sender: FDA-Public Use
  Company Number: None

PATIENT
  Age: 69 Year
  Sex: Female

DRUGS (12)
  1. ESBRIET [Suspect]
     Active Substance: PIRFENIDONE
     Indication: IDIOPATHIC PULMONARY FIBROSIS
     Route: 048
     Dates: start: 20170922, end: 201801
  2. ALBUTEROL. [Concomitant]
     Active Substance: ALBUTEROL
  3. ASA [Concomitant]
     Active Substance: ASPIRIN
  4. QVAR [Concomitant]
     Active Substance: BECLOMETHASONE DIPROPIONATE
  5. SPIRIVA [Concomitant]
     Active Substance: TIOTROPIUM BROMIDE MONOHYDRATE
  6. ATORVASTATIN [Concomitant]
     Active Substance: ATORVASTATIN
  7. OMEPRAZOLE. [Concomitant]
     Active Substance: OMEPRAZOLE
  8. ISOSORBIDE. [Concomitant]
     Active Substance: ISOSORBIDE
  9. RANEXA [Concomitant]
     Active Substance: RANOLAZINE
  10. METOPROLOL. [Concomitant]
     Active Substance: METOPROLOL
  11. LEVOTHYROXINE. [Concomitant]
     Active Substance: LEVOTHYROXINE
  12. CLOPIDOGREL [Concomitant]
     Active Substance: CLOPIDOGREL BISULFATE

REACTIONS (1)
  - Dyspnoea [None]

NARRATIVE: CASE EVENT DATE: 201801
